FAERS Safety Report 7222737-1 (Version None)
Quarter: 2011Q1

REPORT INFORMATION
  Report Type: 
  Country: None (occurrence: None)
  Receive Date: 20110106
  Receipt Date: 20110106
  Transmission Date: 20110831
  Serious: Yes (Other)
  Sender: FDA-Public Use
  Company Number: None

PATIENT
  Sex: Female
  Weight: 77.5651 kg

DRUGS (1)
  1. ZOLPIDEM [Suspect]
     Dates: start: 20101201

REACTIONS (3)
  - HALLUCINATION [None]
  - SOMNAMBULISM [None]
  - DRUG INEFFECTIVE [None]
